FAERS Safety Report 6187131-3 (Version None)
Quarter: 2009Q2

REPORT INFORMATION
  Report Type: 
  Country: None (occurrence: None)
  Receive Date: 20090508
  Receipt Date: 20090424
  Transmission Date: 20091009
  Serious: Yes (Hospitalization)
  Sender: FDA-Public Use
  Company Number: 230972K08USA

PATIENT
  Age: 46 Year
  Sex: Male

DRUGS (1)
  1. REBIF [Suspect]
     Indication: MULTIPLE SCLEROSIS
     Dosage: 44 MCG, 4 IN 1 WEEKS, SUBCUTANEOUS
     Route: 058
     Dates: start: 20020401, end: 20090201

REACTIONS (2)
  - CORONARY ARTERY DISEASE [None]
  - PNEUMONIA [None]
